FAERS Safety Report 6782727-X (Version None)
Quarter: 2010Q2

REPORT INFORMATION
  Report Type: 
  Country: None (occurrence: None)
  Receive Date: 20100621
  Receipt Date: 20100611
  Transmission Date: 20101027
  Serious: Yes (Hospitalization)
  Sender: FDA-Public Use
  Company Number: BE-ABBOTT-10P-013-0648670-00

PATIENT
  Sex: Male
  Weight: 67 kg

DRUGS (3)
  1. HUMIRA [Suspect]
     Indication: ANKYLOSING SPONDYLITIS
     Dates: start: 20090508, end: 20100423
  2. TRAZODONE HYDROCHLORIDE [Concomitant]
     Indication: DRUG USE FOR UNKNOWN INDICATION
     Dosage: IN THE EVENING
  3. LORAZEPAM [Concomitant]
     Indication: DRUG USE FOR UNKNOWN INDICATION
     Dosage: IN THE EVENING

REACTIONS (18)
  - ABDOMINAL DISTENSION [None]
  - ABDOMINAL PAIN [None]
  - APPENDICITIS [None]
  - ARTHRALGIA [None]
  - BACK PAIN [None]
  - CONSTIPATION [None]
  - DECREASED APPETITE [None]
  - HAEMATURIA [None]
  - HENOCH-SCHONLEIN PURPURA [None]
  - LEUKOCYTOCLASTIC VASCULITIS [None]
  - NEPHROGENIC ANAEMIA [None]
  - NEPHROTIC SYNDROME [None]
  - OEDEMA [None]
  - PROTEINURIA [None]
  - RENAL FAILURE [None]
  - RENAL IMPAIRMENT [None]
  - URINARY TRACT INFECTION [None]
  - VASCULITIS NECROTISING [None]
